FAERS Safety Report 5049698-8 (Version None)
Quarter: 2006Q3

REPORT INFORMATION
  Report Type: 
  Country: None (occurrence: None)
  Receive Date: 20060712
  Receipt Date: 20060707
  Transmission Date: 20061208
  Serious: Yes (Hospitalization)
  Sender: FDA-Public Use
  Company Number: DE-BOEHRINGER INGELHEIM PHARMACEUTICALS, INC.-2006-DE-03478DE

PATIENT
  Sex: Female
  Weight: 53 kg

DRUGS (4)
  1. BUSCOPAN [Suspect]
     Route: 048
  2. ASPIRIN [Suspect]
     Route: 048
  3. CODEINE [Suspect]
     Dosage: HALF A BOTTLE
     Route: 048
  4. PARACETAMOL [Suspect]
     Route: 048

REACTIONS (3)
  - ALCOHOL USE [None]
  - DRUG ABUSER [None]
  - SUICIDE ATTEMPT [None]
